FAERS Safety Report 25121018 (Version 1)
Quarter: 2025Q1

REPORT INFORMATION
  Report Type: Spontaneous
  Country: CA (occurrence: CA)
  Receive Date: 20250326
  Receipt Date: 20250326
  Transmission Date: 20250409
  Serious: Yes (Other)
  Sender: Haleon PLC
  Company Number: CA-002147023-NVSC2025CA046496

PATIENT
  Age: 56 Year
  Sex: Female

DRUGS (15)
  1. DICLOFENAC SODIUM [Suspect]
     Active Substance: DICLOFENAC SODIUM
     Indication: Dyspareunia
     Route: 065
  2. DICLOFENAC SODIUM [Suspect]
     Active Substance: DICLOFENAC SODIUM
     Indication: Lichen planus
  3. HYDROCHLOROTHIAZIDE [Suspect]
     Active Substance: HYDROCHLOROTHIAZIDE
     Indication: Dyspareunia
     Route: 065
  4. HYDROCHLOROTHIAZIDE [Suspect]
     Active Substance: HYDROCHLOROTHIAZIDE
     Indication: Lichen planus
  5. PERINDOPRIL [Suspect]
     Active Substance: PERINDOPRIL
     Indication: Dyspareunia
     Route: 065
  6. PERINDOPRIL [Suspect]
     Active Substance: PERINDOPRIL
     Indication: Lichen planus
  7. CONJUGATED ESTROGENS [Suspect]
     Active Substance: ESTROGENS, CONJUGATED
     Indication: Lichen planus
     Route: 065
  8. ATENOLOL [Suspect]
     Active Substance: ATENOLOL
     Indication: Dyspareunia
     Route: 050
  9. ATENOLOL [Suspect]
     Active Substance: ATENOLOL
     Indication: Lichen planus
  10. PANTOPRAZOLE [Suspect]
     Active Substance: PANTOPRAZOLE
     Indication: Lichen planus
     Route: 065
  11. PANTOPRAZOLE [Suspect]
     Active Substance: PANTOPRAZOLE
     Indication: Dyspareunia
  12. CANDESARTAN [Suspect]
     Active Substance: CANDESARTAN
     Indication: Dyspareunia
     Route: 050
  13. CANDESARTAN [Suspect]
     Active Substance: CANDESARTAN
     Indication: Lichen planus
  14. MISOPROSTOL [Suspect]
     Active Substance: MISOPROSTOL
     Indication: Dyspareunia
     Route: 065
  15. MISOPROSTOL [Suspect]
     Active Substance: MISOPROSTOL
     Indication: Lichen planus

REACTIONS (2)
  - Drug ineffective [Unknown]
  - Off label use [Unknown]
